FAERS Safety Report 23130615 (Version 1)
Quarter: 2023Q4

REPORT INFORMATION
  Report Type: Spontaneous
  Country: IT (occurrence: IT)
  Receive Date: 20231031
  Receipt Date: 20231031
  Transmission Date: 20240109
  Serious: Yes (Hospitalization)
  Sender: FDA-Public Use
  Company Number: IT-SUN PHARMACEUTICAL INDUSTRIES LTD-2023RR-414900

PATIENT
  Age: 46 Year
  Sex: Female

DRUGS (3)
  1. SERTRALINE [Suspect]
     Active Substance: SERTRALINE HYDROCHLORIDE
     Indication: Anxiety
     Dosage: 100 MILLIGRAM, UNK
     Route: 048
     Dates: start: 2020, end: 20230701
  2. GABAPENTIN [Suspect]
     Active Substance: GABAPENTIN
     Indication: Epilepsy
     Dosage: 300 MILLIGRAM, BID
     Route: 048
     Dates: start: 2021, end: 20230701
  3. DIAZEPAM [Suspect]
     Active Substance: DIAZEPAM
     Indication: Anxiety
     Dosage: 11 MILLIGRAM PER MILLILITRE, 20 DROPS IN THE MORNING, 15 DROPS IN THE AFTERNOON, 20 DROPS IN THE EVE
     Route: 048
     Dates: start: 2021, end: 20230701

REACTIONS (3)
  - Malaise [Recovering/Resolving]
  - Drug ineffective [Recovering/Resolving]
  - Anxiety [Recovering/Resolving]

NARRATIVE: CASE EVENT DATE: 20230701
